FAERS Safety Report 8109127 (Version 5)
Quarter: 2014Q2

REPORT INFORMATION
  Report Type: Report from Study
  Country: US (occurrence: US)
  Receive Date: 20110826
  Receipt Date: 20140402
  Transmission Date: 20141212
  Serious: Yes (Hospitalization)
  Sender: FDA-Public Use
  Company Number: US-JNJFOC-20110809693

PATIENT
  Age: 12 Year
  Sex: Male
  Weight: 40 kg

DRUGS (5)
  1. INFLIXIMAB, RECOMBINANT [Suspect]
     Indication: CROHN^S DISEASE
     Route: 042
     Dates: start: 20101117
  2. PREDNISONE [Concomitant]
  3. PAMINE [Concomitant]
  4. PREVACID [Concomitant]
  5. FERROUS SULFATE [Concomitant]

REACTIONS (1)
  - Crohn^s disease [Recovered/Resolved]
